FAERS Safety Report 8001531-8 (Version None)
Quarter: 2011Q4

REPORT INFORMATION
  Report Type: 
  Country: None (occurrence: None)
  Receive Date: 20111222
  Receipt Date: 20111216
  Transmission Date: 20120403
  Serious: Yes (Death)
  Sender: FDA-Public Use
  Company Number: BY-PFIZER INC-2011306340

PATIENT
  Sex: Male

DRUGS (1)
  1. VFEND [Suspect]
     Indication: BRONCHOPULMONARY ASPERGILLOSIS
     Dosage: UNK
     Route: 042

REACTIONS (3)
  - DISEASE PROGRESSION [None]
  - BRONCHOPULMONARY ASPERGILLOSIS [None]
  - CROHN'S DISEASE [None]
